FAERS Safety Report 14373346 (Version 1)
Quarter: 2018Q1

REPORT INFORMATION
  Report Type: Spontaneous
  Country: US (occurrence: AS)
  Receive Date: 20180109
  Receipt Date: 20180109
  Transmission Date: 20180509
  Serious: Yes (Hospitalization)
  Sender: FDA-Public Use
  Company Number: None

PATIENT
  Age: 57 Year
  Sex: Male

DRUGS (1)
  1. CHLORTHALIDONE. [Suspect]
     Active Substance: CHLORTHALIDONE
     Indication: HYPERTENSION
     Dates: start: 20170515, end: 20170612

REACTIONS (8)
  - Gastrointestinal disorder [None]
  - Nausea [None]
  - Confusional state [None]
  - Vomiting [None]
  - Hyponatraemia [None]
  - Dizziness [None]
  - Syncope [None]
  - Abdominal pain [None]

NARRATIVE: CASE EVENT DATE: 20170613
